FAERS Safety Report 17130842 (Version 1)
Quarter: 2019Q4

REPORT INFORMATION
  Report Type: Spontaneous
  Country: US (occurrence: US)
  Receive Date: 20191209
  Receipt Date: 20191209
  Transmission Date: 20200122
  Serious: No
  Sender: FDA-Public Use
  Company Number: US-ROCHE-2285769

PATIENT

DRUGS (10)
  1. HYDROMORPHONE [Concomitant]
     Active Substance: HYDROMORPHONE
  2. DILAUDID [Concomitant]
     Active Substance: HYDROMORPHONE HYDROCHLORIDE
  3. ETANERCEPT [Concomitant]
     Active Substance: ETANERCEPT
  4. SUMATRIPTAN. [Concomitant]
     Active Substance: SUMATRIPTAN
  5. ENBREL [Concomitant]
     Active Substance: ETANERCEPT
     Indication: RASH
  6. SIMPONI ARIA [Concomitant]
     Active Substance: GOLIMUMAB
     Indication: RASH
  7. VALIUM [Suspect]
     Active Substance: DIAZEPAM
     Indication: PRODUCT USED FOR UNKNOWN INDICATION
     Route: 065
  8. CLINDAMYCIN. [Concomitant]
     Active Substance: CLINDAMYCIN
  9. AMOXICILLIN. [Concomitant]
     Active Substance: AMOXICILLIN
     Indication: RASH
  10. CLINDAMYCIN. [Concomitant]
     Active Substance: CLINDAMYCIN

REACTIONS (1)
  - Anxiety [Unknown]
